FAERS Safety Report 19795655 (Version 9)
Quarter: 2025Q2

REPORT INFORMATION
  Report Type: Spontaneous
  Country: GB (occurrence: GB)
  Receive Date: 20210907
  Receipt Date: 20250613
  Transmission Date: 20250716
  Serious: Yes (Hospitalization, Other)
  Sender: SANOFI AVENTIS
  Company Number: None

PATIENT
  Age: 68 Year
  Sex: Female
  Weight: 92 kg

DRUGS (309)
  1. CARBOCYSTEINE [Suspect]
     Active Substance: CARBOCYSTEINE
     Indication: Rheumatoid arthritis
     Dosage: 750 MG, QD
     Route: 065
     Dates: start: 20120917
  2. CARBOCYSTEINE [Suspect]
     Active Substance: CARBOCYSTEINE
     Indication: Abdominal discomfort
     Dosage: 750 MG, QD
     Route: 065
  3. CARBOCYSTEINE [Suspect]
     Active Substance: CARBOCYSTEINE
     Indication: Off label use
     Dosage: 750 MG, QD
     Route: 065
     Dates: start: 20100917
  4. CARBOCYSTEINE [Suspect]
     Active Substance: CARBOCYSTEINE
     Indication: Product used for unknown indication
     Dosage: 750 MG, QD (CAPSULE)
     Dates: start: 20100917
  5. CARBOCYSTEINE [Suspect]
     Active Substance: CARBOCYSTEINE
     Dosage: 750 MG, QD
     Dates: start: 20210917
  6. CARBOCYSTEINE [Suspect]
     Active Substance: CARBOCYSTEINE
  7. CARBOCYSTEINE [Suspect]
     Active Substance: CARBOCYSTEINE
     Dosage: 750 MG, QD
  8. CARBOCYSTEINE [Suspect]
     Active Substance: CARBOCYSTEINE
     Dosage: 750 MG, QD
  9. CARBOCYSTEINE [Suspect]
     Active Substance: CARBOCYSTEINE
     Dosage: 750 MG, QD
  10. CARBOCYSTEINE [Suspect]
     Active Substance: CARBOCYSTEINE
     Dosage: 750 MG, ONCE PER DAY (750 MG, QD)
     Dates: start: 20210917
  11. CARBOCYSTEINE [Suspect]
     Active Substance: CARBOCYSTEINE
     Dosage: 750 MG, ONCE PER DAY
     Dates: start: 20100917
  12. CARBOCYSTEINE [Suspect]
     Active Substance: CARBOCYSTEINE
  13. CARBOCYSTEINE [Suspect]
     Active Substance: CARBOCYSTEINE
     Dosage: 750 MG, ONCE PER DAY
  14. CARBOCYSTEINE [Suspect]
     Active Substance: CARBOCYSTEINE
     Dosage: 750 MG, ONCE PER DAY (750 MG, QD)
     Dates: start: 20120917
  15. CARBOCYSTEINE [Suspect]
     Active Substance: CARBOCYSTEINE
     Dosage: 750 MG, ONCE PER DAY
  16. CARBOCYSTEINE [Suspect]
     Active Substance: CARBOCYSTEINE
     Dosage: 750 MG, ONCE PER DAY (750 MG, QD)
     Dates: start: 20200917
  17. CIPROFLOXACIN HYDROCHLORIDE [Suspect]
     Active Substance: CIPROFLOXACIN HYDROCHLORIDE
     Indication: Depression
     Dosage: 1000 MG, QD (1000 MG, DAILY - CUMULATIVE DOSE TO FIRST REACTION: 14000MG)
     Route: 065
     Dates: start: 20100917
  18. CIPROFLOXACIN HYDROCHLORIDE [Suspect]
     Active Substance: CIPROFLOXACIN HYDROCHLORIDE
     Indication: Rheumatoid arthritis
     Dosage: 1000 MG, QD
  19. CIPROFLOXACIN HYDROCHLORIDE [Suspect]
     Active Substance: CIPROFLOXACIN HYDROCHLORIDE
     Indication: Abdominal discomfort
     Dosage: 1000 MG, QD
     Route: 065
     Dates: start: 20200917
  20. CIPROFLOXACIN HYDROCHLORIDE [Suspect]
     Active Substance: CIPROFLOXACIN HYDROCHLORIDE
     Indication: Abdominal discomfort
  21. OMEPRAZOLE [Suspect]
     Active Substance: OMEPRAZOLE
     Indication: Abdominal discomfort
     Dosage: 80 MG, ONCE PER DAY (20 MG, 4 TIMES PER
     Dates: start: 20100917
  22. OMEPRAZOLE [Suspect]
     Active Substance: OMEPRAZOLE
     Indication: Gastrointestinal disorder
     Dosage: 40 MG, QD^20 MG, 2 TIMES PER DAY (20 MG, BID 40
     Dates: start: 20100917
  23. OMEPRAZOLE [Suspect]
     Active Substance: OMEPRAZOLE
     Indication: Product used for unknown indication
     Dosage: 40 MG, QD;(20 MG, 2X/DAY FOR STOMACH;
     Dates: start: 20100917
  24. OMEPRAZOLE [Suspect]
     Active Substance: OMEPRAZOLE
     Dosage: 80 MG, QD;20 MG, 4 TIMES PER DAY
     Dates: start: 20100917
  25. OMEPRAZOLE [Suspect]
     Active Substance: OMEPRAZOLE
     Dosage: 20 MG, BID;40 MG, QD 2X/DAY)
  26. OMEPRAZOLE [Suspect]
     Active Substance: OMEPRAZOLE
     Dosage: 80 MG, QD;40 MG, 2 TIMES PER DAY (40 MG, QD (20 MG, 2X/DAY))
     Dates: start: 20100917
  27. OMEPRAZOLE [Suspect]
     Active Substance: OMEPRAZOLE
     Dosage: 20 MG, QD
     Dates: start: 20100917
  28. OMEPRAZOLE [Suspect]
     Active Substance: OMEPRAZOLE
     Dosage: 40 MG, QD;20 MG, 2 TIMES PER DAY (20 MG, 2X/DAY)
     Dates: start: 20100917
  29. OMEPRAZOLE [Suspect]
     Active Substance: OMEPRAZOLE
     Dosage: 20 MG, QD
     Dates: start: 20200917
  30. OMEPRAZOLE [Suspect]
     Active Substance: OMEPRAZOLE
     Dosage: 80 MG, QD
     Dates: start: 20200917
  31. OMEPRAZOLE [Suspect]
     Active Substance: OMEPRAZOLE
     Dosage: 20 MG, QH;(480 MILLIGRAM DAILY; 20 MG, 2X/DAY)
  32. OMEPRAZOLE [Suspect]
     Active Substance: OMEPRAZOLE
     Dosage: 80 MG, QD
  33. OMEPRAZOLE [Suspect]
     Active Substance: OMEPRAZOLE
     Dosage: 20 MG, QD
  34. OMEPRAZOLE [Suspect]
     Active Substance: OMEPRAZOLE
     Dosage: 20 MG, QD
     Dates: start: 20100917
  35. OMEPRAZOLE [Suspect]
     Active Substance: OMEPRAZOLE
     Dosage: 40 MG, QD (20 MG, 2X/DAY)
     Dates: start: 20100917
  36. OMEPRAZOLE [Suspect]
     Active Substance: OMEPRAZOLE
     Dosage: 80 MG, QD
  37. OMEPRAZOLE [Suspect]
     Active Substance: OMEPRAZOLE
     Dosage: 80 MG, QD
     Dates: start: 20200917
  38. OMEPRAZOLE [Suspect]
     Active Substance: OMEPRAZOLE
     Dosage: 20 MG, QD
     Dates: start: 20200917
  39. OMEPRAZOLE [Suspect]
     Active Substance: OMEPRAZOLE
     Dosage: 80 MG, QD
     Dates: start: 20100917
  40. OMEPRAZOLE [Suspect]
     Active Substance: OMEPRAZOLE
     Dosage: 20 MG, QD
     Dates: start: 20100917
  41. OMEPRAZOLE [Suspect]
     Active Substance: OMEPRAZOLE
     Dosage: 20 MG, QD
     Dates: start: 20100917
  42. OMEPRAZOLE [Suspect]
     Active Substance: OMEPRAZOLE
     Dosage: 20 MG, BID
  43. OMEPRAZOLE [Suspect]
     Active Substance: OMEPRAZOLE
     Dosage: 20 MG, QH (480 MILLIGRAM DAILY; 20 MG, 2X/DAY)
  44. OMEPRAZOLE [Suspect]
     Active Substance: OMEPRAZOLE
  45. OMEPRAZOLE [Suspect]
     Active Substance: OMEPRAZOLE
  46. OMEPRAZOLE [Suspect]
     Active Substance: OMEPRAZOLE
     Dosage: 80 MG, QD
     Dates: start: 20200917
  47. OMEPRAZOLE [Suspect]
     Active Substance: OMEPRAZOLE
     Dosage: 20 MG, QH (480 MILLIGRAM DAILY; 20 MG, 2X/DAY)
  48. OMEPRAZOLE [Suspect]
     Active Substance: OMEPRAZOLE
     Dosage: 20 MG, BID
  49. OMEPRAZOLE [Suspect]
     Active Substance: OMEPRAZOLE
     Dosage: 80 MG, QD
  50. OMEPRAZOLE [Suspect]
     Active Substance: OMEPRAZOLE
     Dosage: 20 MG, QD
     Dates: start: 20200917
  51. OMEPRAZOLE [Suspect]
     Active Substance: OMEPRAZOLE
     Dosage: 20 MG, QD
     Dates: start: 20200917
  52. OMEPRAZOLE [Suspect]
     Active Substance: OMEPRAZOLE
     Dosage: 20 MG, QH (480 MILLIGRAM DAILY; 20 MG, 2XDAY)
     Dates: start: 20100917
  53. OMEPRAZOLE [Suspect]
     Active Substance: OMEPRAZOLE
     Dosage: 80 MG, ONCE PER DAY (20 MG, 4 TIMES PER DAY)
     Dates: start: 20100917
  54. OMEPRAZOLE [Suspect]
     Active Substance: OMEPRAZOLE
     Dosage: 20 MG, ONCE PER DAY
  55. OMEPRAZOLE [Suspect]
     Active Substance: OMEPRAZOLE
     Dosage: 20 MG, ONCE PER DAY
     Dates: start: 20100917
  56. OMEPRAZOLE [Suspect]
     Active Substance: OMEPRAZOLE
     Dosage: 80 MG, ONCE PER DAY
  57. OMEPRAZOLE [Suspect]
     Active Substance: OMEPRAZOLE
     Dosage: 20 MG, PER HOUR (480 MILLIGRAM DAILY; 20 MG, 2X/DAY)
  58. OMEPRAZOLE [Suspect]
     Active Substance: OMEPRAZOLE
     Dosage: 80 MG, ONCE PER DAY
     Dates: start: 20200917
  59. OMEPRAZOLE [Suspect]
     Active Substance: OMEPRAZOLE
     Dosage: 20 MG, 2 TIMES PER DAY (20 MG, 2X/DAY)
     Dates: start: 20100917
  60. OMEPRAZOLE [Suspect]
     Active Substance: OMEPRAZOLE
     Dosage: 40 MG, 2 TIMES PER DAY (40 MG, QD (20 MG, 2X/DAY))
     Dates: start: 20100917
  61. OMEPRAZOLE [Suspect]
     Active Substance: OMEPRAZOLE
     Dosage: 20 MG, 4 TIMES PER DAY
     Dates: start: 20100917
  62. OMEPRAZOLE [Suspect]
     Active Substance: OMEPRAZOLE
     Dosage: 20 MG, 2 TIMES PER DAY (20 MG, BID  40 MG, QD 2X/DAY )
     Dates: start: 20100917
  63. CARBAMAZEPINE [Suspect]
     Active Substance: CARBAMAZEPINE
     Indication: Product used for unknown indication
     Dosage: 750 MG, QD
     Route: 065
     Dates: start: 20100917
  64. CARBAMAZEPINE [Suspect]
     Active Substance: CARBAMAZEPINE
     Dosage: 750 MG, ONCE PER DAY (QD), 2750250 MG
     Dates: start: 20200917
  65. CARBAMAZEPINE [Suspect]
     Active Substance: CARBAMAZEPINE
     Dosage: 750 MG, QD
     Dates: start: 20210917
  66. CARBAMAZEPINE [Suspect]
     Active Substance: CARBAMAZEPINE
     Dosage: 750 MG, QD
     Dates: start: 20100917
  67. CARBAMAZEPINE [Suspect]
     Active Substance: CARBAMAZEPINE
     Dosage: 750 MG, QD
  68. VENLAFAXINE HYDROCHLORIDE [Suspect]
     Active Substance: VENLAFAXINE HYDROCHLORIDE
     Indication: Depression
     Dosage: 225 MG, QD
     Route: 065
  69. VENLAFAXINE HYDROCHLORIDE [Suspect]
     Active Substance: VENLAFAXINE HYDROCHLORIDE
     Indication: Rheumatoid arthritis
     Dosage: 225 MG, QD
  70. VENLAFAXINE HYDROCHLORIDE [Suspect]
     Active Substance: VENLAFAXINE HYDROCHLORIDE
     Dosage: 225 MG, QD
  71. VENLAFAXINE HYDROCHLORIDE [Suspect]
     Active Substance: VENLAFAXINE HYDROCHLORIDE
     Dosage: 225 MG, QD
  72. VENLAFAXINE HYDROCHLORIDE [Suspect]
     Active Substance: VENLAFAXINE HYDROCHLORIDE
     Dosage: 225 MG, QD
  73. VENLAFAXINE HYDROCHLORIDE [Suspect]
     Active Substance: VENLAFAXINE HYDROCHLORIDE
     Dosage: 225 MG, QD
  74. VENLAFAXINE HYDROCHLORIDE [Suspect]
     Active Substance: VENLAFAXINE HYDROCHLORIDE
     Dosage: 225 MG, QD
  75. VENLAFAXINE HYDROCHLORIDE [Suspect]
     Active Substance: VENLAFAXINE HYDROCHLORIDE
     Dosage: 225 MG, QD
  76. VENLAFAXINE HYDROCHLORIDE [Suspect]
     Active Substance: VENLAFAXINE HYDROCHLORIDE
     Dosage: 225 MG, QD
  77. VENLAFAXINE HYDROCHLORIDE [Suspect]
     Active Substance: VENLAFAXINE HYDROCHLORIDE
  78. IRBESARTAN [Suspect]
     Active Substance: IRBESARTAN
     Indication: Abdominal discomfort
     Dosage: 150 G, QD
     Dates: start: 20100917
  79. IRBESARTAN [Suspect]
     Active Substance: IRBESARTAN
     Indication: Depression
     Dosage: 150 G, QD
     Dates: start: 20100912
  80. IRBESARTAN [Suspect]
     Active Substance: IRBESARTAN
     Indication: Product used for unknown indication
     Dosage: 150 G, QD
     Dates: start: 20100917
  81. IRBESARTAN [Suspect]
     Active Substance: IRBESARTAN
     Dosage: 150 G, QD
     Dates: start: 20100917
  82. IRBESARTAN [Suspect]
     Active Substance: IRBESARTAN
     Dosage: 150 G, QD
     Dates: start: 20100917
  83. IRBESARTAN [Suspect]
     Active Substance: IRBESARTAN
     Dosage: 150 G, QD
     Dates: start: 20100912
  84. IRBESARTAN [Suspect]
     Active Substance: IRBESARTAN
     Dosage: 150 G, QD
  85. AMOXICILLIN [Suspect]
     Active Substance: AMOXICILLIN
     Indication: Abdominal discomfort
     Dates: start: 20210904
  86. AMOXICILLIN [Suspect]
     Active Substance: AMOXICILLIN
     Indication: Product used for unknown indication
     Dates: start: 20210904
  87. AMOXICILLIN [Suspect]
     Active Substance: AMOXICILLIN
     Dates: start: 20210904
  88. AMOXICILLIN [Suspect]
     Active Substance: AMOXICILLIN
     Dates: start: 20210904
  89. AMOXICILLIN [Suspect]
     Active Substance: AMOXICILLIN
  90. AMOXICILLIN [Suspect]
     Active Substance: AMOXICILLIN
  91. AMOXICILLIN [Suspect]
     Active Substance: AMOXICILLIN
     Dosage: CUMULATIVE DOSE 5600 MG
     Dates: start: 20200917
  92. AMOXICILLIN [Suspect]
     Active Substance: AMOXICILLIN
     Dates: start: 20210904
  93. AMOXICILLIN [Suspect]
     Active Substance: AMOXICILLIN
     Dosage: 400 MG, QD
     Dates: start: 20100917
  94. AMOXICILLIN [Suspect]
     Active Substance: AMOXICILLIN
     Dosage: 400 MG, QD
     Dates: start: 20200917
  95. AMINOPHYLLINE [Suspect]
     Active Substance: AMINOPHYLLINE
     Indication: Product used for unknown indication
     Dosage: 400 MG, QD
     Dates: start: 20100917
  96. AMINOPHYLLINE [Suspect]
     Active Substance: AMINOPHYLLINE
     Indication: Product used for unknown indication
     Dosage: 400 MG, QD
     Dates: start: 20200917
  97. AMINOPHYLLINE [Suspect]
     Active Substance: AMINOPHYLLINE
     Dosage: 400 MG, QD
  98. AMINOPHYLLINE [Suspect]
     Active Substance: AMINOPHYLLINE
     Dosage: 400 MG, QD
     Dates: start: 20100917
  99. AMINOPHYLLINE [Suspect]
     Active Substance: AMINOPHYLLINE
     Dosage: 400 MG, QD
     Dates: start: 20200917
  100. AMINOPHYLLINE [Suspect]
     Active Substance: AMINOPHYLLINE
     Dosage: 400 MG, QD
     Dates: start: 20100917
  101. AMINOPHYLLINE [Suspect]
     Active Substance: AMINOPHYLLINE
     Dosage: 400 MG, QD
     Dates: start: 20200917
  102. AMINOPHYLLINE [Suspect]
     Active Substance: AMINOPHYLLINE
     Dosage: 400 MG, QD
  103. AMINOPHYLLINE [Suspect]
     Active Substance: AMINOPHYLLINE
     Dosage: 400 MG, ONCE PER DAY
     Dates: start: 20100917
  104. AMINOPHYLLINE [Suspect]
     Active Substance: AMINOPHYLLINE
     Dosage: 400 MG, ONCE PER DAY
     Dates: start: 20200917
  105. METHOTREXATE [Suspect]
     Active Substance: METHOTREXATE
     Indication: Rheumatoid arthritis
     Dosage: 17.5 MG, QW
     Dates: start: 20100917
  106. METHOTREXATE [Suspect]
     Active Substance: METHOTREXATE
     Dosage: 18 MG, QW
     Dates: start: 20100917
  107. METHOTREXATE [Suspect]
     Active Substance: METHOTREXATE
     Dosage: 18 MG, QW
  108. METHOTREXATE [Suspect]
     Active Substance: METHOTREXATE
     Dosage: UNK, QW
  109. METHOTREXATE [Suspect]
     Active Substance: METHOTREXATE
     Dosage: 17.5 MG, PER WEEK (UNK UNK, WEEKLY (AT 17.5, WEEKLY))
     Dates: start: 20100917
  110. METHOTREXATE [Suspect]
     Active Substance: METHOTREXATE
     Dosage: 17.5 MILLIGRAM, Q.W., UNK UNK, Q.W., WEEKLY, AT 17.5 (UNKNOWN UNIT),
     Dates: start: 20100917
  111. METHOTREXATE [Suspect]
     Active Substance: METHOTREXATE
     Dosage: 18 MG, PER WEEK
  112. METHOTREXATE [Suspect]
     Active Substance: METHOTREXATE
     Dosage: UNK, OW
  113. METHOTREXATE [Suspect]
     Active Substance: METHOTREXATE
     Dosage: 18 MG, PER WEEK (18 MG, QW (UNK UNK, WEEKLY (AT 17.5, WEEKLY))
     Dates: start: 20100917
  114. METHOTREXATE [Suspect]
     Active Substance: METHOTREXATE
  115. METHOTREXATE [Suspect]
     Active Substance: METHOTREXATE
  116. SIMETHICONE (DIMETHICONE) [Suspect]
     Active Substance: DIMETHICONE
     Indication: Product used for unknown indication
  117. GUANIDINE [Suspect]
     Active Substance: GUANIDINE
     Indication: Depression
     Dosage: 750 MG, QD;(750 MG, QD(1,3-DIPHENYLGUANIDINE))
     Route: 065
  118. GUANIDINE [Suspect]
     Active Substance: GUANIDINE
     Indication: Abdominal discomfort
  119. GUANIDINE [Suspect]
     Active Substance: GUANIDINE
     Indication: Product used for unknown indication
     Dosage: UNK UNK, QD;(1,3-DIPHENYLGUANIDINE)
  120. GUANIDINE [Suspect]
     Active Substance: GUANIDINE
  121. ENBREL [Suspect]
     Active Substance: ETANERCEPT
     Indication: Rheumatoid arthritis
     Dosage: 50 MG, QW (50 MG, QW;MYCLIC PEN))
     Route: 058
     Dates: start: 20100917
  122. ENBREL [Suspect]
     Active Substance: ETANERCEPT
     Dosage: 50 MG, QW (50 MG, QW;MYCLIC PEN)
     Dates: start: 20110917
  123. CHARCOAL ACTIVATED [Suspect]
     Active Substance: ACTIVATED CHARCOAL
     Indication: Product used for unknown indication
     Dosage: 750 MG, QD (1,3-DIPHENYLGUANIDINE)
  124. CHARCOAL ACTIVATED [Suspect]
     Active Substance: ACTIVATED CHARCOAL
  125. SULFAGUANIDINE [Suspect]
     Active Substance: SULFAGUANIDINE
     Indication: Abdominal discomfort
     Dosage: 750 MG, QD
  126. SULFAGUANIDINE [Suspect]
     Active Substance: SULFAGUANIDINE
     Dosage: 750 MG, QD
  127. SULFAGUANIDINE [Suspect]
     Active Substance: SULFAGUANIDINE
     Dosage: 750 MG, QD
  128. SULFAGUANIDINE [Suspect]
     Active Substance: SULFAGUANIDINE
     Dosage: 750 MG, QD
  129. SULFAGUANIDINE [Suspect]
     Active Substance: SULFAGUANIDINE
     Dosage: 750 MG, QD
  130. SULFAGUANIDINE [Suspect]
     Active Substance: SULFAGUANIDINE
     Dosage: 750 MG, QD
  131. SULFAGUANIDINE [Suspect]
     Active Substance: SULFAGUANIDINE
     Dosage: 750 MG, ONCE PER DAY
  132. SULFAGUANIDINE [Suspect]
     Active Substance: SULFAGUANIDINE
     Dosage: 750 MG,  ONCE PER DAY
  133. PHYLLOCONTIN [Suspect]
     Active Substance: AMINOPHYLLINE
     Indication: Product used for unknown indication
     Dosage: 400 MG, QD
     Dates: start: 20100917
  134. PHYLLOCONTIN [Suspect]
     Active Substance: AMINOPHYLLINE
     Dosage: 400 MG, QD
  135. PROBIOTICS NOS [Suspect]
     Active Substance: PROBIOTICS NOS
     Indication: Abdominal discomfort
  136. PROBIOTICS NOS [Suspect]
     Active Substance: PROBIOTICS NOS
     Indication: Depression
  137. PROBIOTICS NOS [Suspect]
     Active Substance: PROBIOTICS NOS
     Indication: Pituitary tumour
  138. PROBIOTICS NOS [Suspect]
     Active Substance: PROBIOTICS NOS
  139. PROBIOTICS NOS [Suspect]
     Active Substance: PROBIOTICS NOS
  140. BIFIDOBACTERIUM LONGUM [Suspect]
     Active Substance: BIFIDOBACTERIUM LONGUM
     Indication: Abdominal discomfort
  141. BIFIDOBACTERIUM LONGUM [Suspect]
     Active Substance: BIFIDOBACTERIUM LONGUM
     Indication: Depression
  142. BIFIDOBACTERIUM LONGUM [Suspect]
     Active Substance: BIFIDOBACTERIUM LONGUM
  143. ZINC [Concomitant]
     Active Substance: ZINC
     Indication: Abdominal discomfort
     Dosage: 750 MG, QD (750 MG, QD ((DIETHYLDITHIOCARBAMATE))
  144. ZINC [Concomitant]
     Active Substance: ZINC
     Indication: Depression
  145. ZINC [Concomitant]
     Active Substance: ZINC
     Indication: Product used for unknown indication
  146. THEOPHYLLINE [Suspect]
     Active Substance: THEOPHYLLINE
     Indication: Depression
     Dosage: 750 MG, QD
  147. THEOPHYLLINE [Suspect]
     Active Substance: THEOPHYLLINE
     Indication: Abdominal discomfort
     Dosage: 750 MG, QD
  148. THEOPHYLLINE [Suspect]
     Active Substance: THEOPHYLLINE
     Dosage: 750 MG, QD
  149. LACTOBACILLUS RHAMNOSUS [Suspect]
     Active Substance: LACTOBACILLUS RHAMNOSUS
     Indication: Depression
  150. LACTOBACILLUS RHAMNOSUS [Suspect]
     Active Substance: LACTOBACILLUS RHAMNOSUS
     Indication: Abdominal discomfort
  151. LACTOBACILLUS RHAMNOSUS [Suspect]
     Active Substance: LACTOBACILLUS RHAMNOSUS
     Indication: Abdominal discomfort
  152. LACTOBACILLUS RHAMNOSUS [Suspect]
     Active Substance: LACTOBACILLUS RHAMNOSUS
  153. LACTOBACILLUS RHAMNOSUS [Suspect]
     Active Substance: LACTOBACILLUS RHAMNOSUS
  154. LACTOBACILLUS RHAMNOSUS [Suspect]
     Active Substance: LACTOBACILLUS RHAMNOSUS
  155. LACTOBACILLUS RHAMNOSUS [Suspect]
     Active Substance: LACTOBACILLUS RHAMNOSUS
  156. BENDROFLUMETHIAZIDE [Concomitant]
     Active Substance: BENDROFLUMETHIAZIDE
     Indication: Pituitary tumour
     Route: 065
  157. BENDROFLUMETHIAZIDE [Concomitant]
     Active Substance: BENDROFLUMETHIAZIDE
     Indication: Depression
  158. BENDROFLUMETHIAZIDE [Concomitant]
     Active Substance: BENDROFLUMETHIAZIDE
     Indication: Product used for unknown indication
  159. BENDROFLUMETHIAZIDE [Concomitant]
     Active Substance: BENDROFLUMETHIAZIDE
  160. BENDROFLUMETHIAZIDE [Concomitant]
     Active Substance: BENDROFLUMETHIAZIDE
  161. BENDROFLUMETHIAZIDE [Concomitant]
     Active Substance: BENDROFLUMETHIAZIDE
  162. BENDROFLUMETHIAZIDE [Concomitant]
     Active Substance: BENDROFLUMETHIAZIDE
  163. BENDROFLUMETHIAZIDE [Concomitant]
     Active Substance: BENDROFLUMETHIAZIDE
  164. BENDROFLUMETHIAZIDE [Concomitant]
     Active Substance: BENDROFLUMETHIAZIDE
  165. BENDROFLUMETHIAZIDE [Concomitant]
     Active Substance: BENDROFLUMETHIAZIDE
  166. BENDROFLUMETHIAZIDE [Concomitant]
     Active Substance: BENDROFLUMETHIAZIDE
  167. BENDROFLUMETHIAZIDE [Concomitant]
     Active Substance: BENDROFLUMETHIAZIDE
  168. BENDROFLUMETHIAZIDE [Concomitant]
     Active Substance: BENDROFLUMETHIAZIDE
  169. BENDROFLUMETHIAZIDE [Concomitant]
     Active Substance: BENDROFLUMETHIAZIDE
  170. BENDROFLUMETHIAZIDE [Concomitant]
     Active Substance: BENDROFLUMETHIAZIDE
  171. BENDROFLUMETHIAZIDE [Concomitant]
     Active Substance: BENDROFLUMETHIAZIDE
  172. BENDROFLUMETHIAZIDE [Concomitant]
     Active Substance: BENDROFLUMETHIAZIDE
  173. BENDROFLUMETHIAZIDE [Concomitant]
     Active Substance: BENDROFLUMETHIAZIDE
  174. BENDROFLUMETHIAZIDE [Concomitant]
     Active Substance: BENDROFLUMETHIAZIDE
  175. BENDROFLUMETHIAZIDE [Concomitant]
     Active Substance: BENDROFLUMETHIAZIDE
  176. BENDROFLUMETHIAZIDE [Concomitant]
     Active Substance: BENDROFLUMETHIAZIDE
  177. CETIRIZINE [Concomitant]
     Active Substance: CETIRIZINE HYDROCHLORIDE
     Indication: Abdominal discomfort
  178. CETIRIZINE [Concomitant]
     Active Substance: CETIRIZINE HYDROCHLORIDE
     Indication: Product used for unknown indication
  179. CETIRIZINE [Concomitant]
     Active Substance: CETIRIZINE HYDROCHLORIDE
     Indication: Abdominal discomfort
  180. CETIRIZINE [Concomitant]
     Active Substance: CETIRIZINE HYDROCHLORIDE
     Indication: Product used for unknown indication
  181. CETIRIZINE [Concomitant]
     Active Substance: CETIRIZINE HYDROCHLORIDE
  182. CETIRIZINE [Concomitant]
     Active Substance: CETIRIZINE HYDROCHLORIDE
  183. CETIRIZINE [Concomitant]
     Active Substance: CETIRIZINE HYDROCHLORIDE
  184. CETIRIZINE [Concomitant]
     Active Substance: CETIRIZINE HYDROCHLORIDE
  185. CABERGOLINE [Concomitant]
     Active Substance: CABERGOLINE
     Indication: Empty sella syndrome
     Route: 065
  186. CABERGOLINE [Concomitant]
     Active Substance: CABERGOLINE
     Indication: Pituitary tumour
  187. CABERGOLINE [Concomitant]
     Active Substance: CABERGOLINE
     Indication: Pituitary tumour
  188. CABERGOLINE [Concomitant]
     Active Substance: CABERGOLINE
     Indication: Pituitary tumour
  189. CABERGOLINE [Concomitant]
     Active Substance: CABERGOLINE
     Indication: Product used for unknown indication
  190. CABERGOLINE [Concomitant]
     Active Substance: CABERGOLINE
     Indication: Rheumatoid arthritis
  191. CABERGOLINE [Concomitant]
     Active Substance: CABERGOLINE
  192. CABERGOLINE [Concomitant]
     Active Substance: CABERGOLINE
  193. CABERGOLINE [Concomitant]
     Active Substance: CABERGOLINE
  194. CABERGOLINE [Concomitant]
     Active Substance: CABERGOLINE
  195. CABERGOLINE [Concomitant]
     Active Substance: CABERGOLINE
  196. CABERGOLINE [Concomitant]
     Active Substance: CABERGOLINE
  197. CABERGOLINE [Concomitant]
     Active Substance: CABERGOLINE
  198. CABERGOLINE [Concomitant]
     Active Substance: CABERGOLINE
  199. CABERGOLINE [Concomitant]
     Active Substance: CABERGOLINE
  200. CABERGOLINE [Concomitant]
     Active Substance: CABERGOLINE
  201. CABERGOLINE [Concomitant]
     Active Substance: CABERGOLINE
  202. CABERGOLINE [Concomitant]
     Active Substance: CABERGOLINE
  203. CABERGOLINE [Concomitant]
     Active Substance: CABERGOLINE
  204. CABERGOLINE [Concomitant]
     Active Substance: CABERGOLINE
  205. CABERGOLINE [Concomitant]
     Active Substance: CABERGOLINE
  206. CABERGOLINE [Concomitant]
     Active Substance: CABERGOLINE
  207. CABERGOLINE [Concomitant]
     Active Substance: CABERGOLINE
  208. CABERGOLINE [Concomitant]
     Active Substance: CABERGOLINE
  209. CABERGOLINE [Concomitant]
     Active Substance: CABERGOLINE
  210. ORUVAIL [Concomitant]
     Active Substance: KETOPROFEN
     Indication: Empty sella syndrome
  211. ORUVAIL [Concomitant]
     Active Substance: KETOPROFEN
     Indication: Product used for unknown indication
  212. ORUVAIL [Concomitant]
     Active Substance: KETOPROFEN
     Indication: Product used for unknown indication
  213. ORUVAIL [Concomitant]
     Active Substance: KETOPROFEN
  214. ORUVAIL [Concomitant]
     Active Substance: KETOPROFEN
  215. ORUVAIL [Concomitant]
     Active Substance: KETOPROFEN
  216. ORUVAIL [Concomitant]
     Active Substance: KETOPROFEN
  217. ORUVAIL [Concomitant]
     Active Substance: KETOPROFEN
  218. ORUVAIL [Concomitant]
     Active Substance: KETOPROFEN
  219. ORUVAIL [Concomitant]
     Active Substance: KETOPROFEN
  220. ORUVAIL [Concomitant]
     Active Substance: KETOPROFEN
  221. ORUVAIL [Concomitant]
     Active Substance: KETOPROFEN
  222. ORUVAIL [Concomitant]
     Active Substance: KETOPROFEN
  223. ORUVAIL [Concomitant]
     Active Substance: KETOPROFEN
  224. ORUVAIL [Concomitant]
     Active Substance: KETOPROFEN
  225. ORUVAIL [Concomitant]
     Active Substance: KETOPROFEN
  226. ORUVAIL [Concomitant]
     Active Substance: KETOPROFEN
  227. ORUVAIL [Concomitant]
     Active Substance: KETOPROFEN
  228. ORUVAIL [Concomitant]
     Active Substance: KETOPROFEN
  229. ORUVAIL [Concomitant]
     Active Substance: KETOPROFEN
  230. ORUVAIL [Concomitant]
     Active Substance: KETOPROFEN
  231. ORUVAIL [Concomitant]
     Active Substance: KETOPROFEN
  232. ORUVAIL [Concomitant]
     Active Substance: KETOPROFEN
  233. ORUVAIL [Concomitant]
     Active Substance: KETOPROFEN
  234. ORUVAIL [Concomitant]
     Active Substance: KETOPROFEN
  235. ORUVAIL [Concomitant]
     Active Substance: KETOPROFEN
  236. EZETIMIBE [Concomitant]
     Active Substance: EZETIMIBE
     Indication: Product used for unknown indication
     Dates: start: 20100917
  237. EZETIMIBE [Concomitant]
     Active Substance: EZETIMIBE
     Indication: Product used for unknown indication
  238. EZETIMIBE [Concomitant]
     Active Substance: EZETIMIBE
     Indication: Depression
  239. EZETIMIBE [Concomitant]
     Active Substance: EZETIMIBE
  240. EZETIMIBE [Concomitant]
     Active Substance: EZETIMIBE
  241. EZETIMIBE [Concomitant]
     Active Substance: EZETIMIBE
  242. EZETIMIBE [Concomitant]
     Active Substance: EZETIMIBE
  243. EZETIMIBE [Concomitant]
     Active Substance: EZETIMIBE
  244. EZETIMIBE [Concomitant]
     Active Substance: EZETIMIBE
  245. EZETIMIBE [Concomitant]
     Active Substance: EZETIMIBE
  246. EZETIMIBE [Concomitant]
     Active Substance: EZETIMIBE
  247. EZETIMIBE [Concomitant]
     Active Substance: EZETIMIBE
  248. EZETIMIBE [Concomitant]
     Active Substance: EZETIMIBE
  249. EZETIMIBE [Concomitant]
     Active Substance: EZETIMIBE
     Dosage: 50 MG, QW
     Dates: start: 20210917
  250. EZETIMIBE [Concomitant]
     Active Substance: EZETIMIBE
  251. EZETIMIBE [Concomitant]
     Active Substance: EZETIMIBE
  252. EZETIMIBE [Concomitant]
     Active Substance: EZETIMIBE
  253. FOLIC ACID [Concomitant]
     Active Substance: FOLIC ACID
     Indication: Product used for unknown indication
     Route: 065
  254. FOLIC ACID [Concomitant]
     Active Substance: FOLIC ACID
     Indication: Abdominal discomfort
  255. FOLIC ACID [Concomitant]
     Active Substance: FOLIC ACID
     Indication: Product used for unknown indication
  256. FOLIC ACID [Concomitant]
     Active Substance: FOLIC ACID
  257. FOLIC ACID [Concomitant]
     Active Substance: FOLIC ACID
  258. FOLIC ACID [Concomitant]
     Active Substance: FOLIC ACID
  259. FOLIC ACID [Concomitant]
     Active Substance: FOLIC ACID
  260. FOLIC ACID [Concomitant]
     Active Substance: FOLIC ACID
  261. FOLIC ACID [Concomitant]
     Active Substance: FOLIC ACID
  262. FOLIC ACID [Concomitant]
     Active Substance: FOLIC ACID
  263. FOLIC ACID [Concomitant]
     Active Substance: FOLIC ACID
  264. FOLIC ACID [Concomitant]
     Active Substance: FOLIC ACID
  265. FOLIC ACID [Concomitant]
     Active Substance: FOLIC ACID
  266. FOLIC ACID [Concomitant]
     Active Substance: FOLIC ACID
  267. FOLIC ACID [Concomitant]
     Active Substance: FOLIC ACID
  268. FOLIC ACID [Concomitant]
     Active Substance: FOLIC ACID
  269. FOLIC ACID [Concomitant]
     Active Substance: FOLIC ACID
  270. LEVOTHYROXINE [Concomitant]
     Active Substance: LEVOTHYROXINE
     Indication: Abdominal discomfort
     Route: 016
  271. LEVOTHYROXINE [Concomitant]
     Active Substance: LEVOTHYROXINE
     Indication: Product used for unknown indication
     Route: 016
  272. LEVOTHYROXINE [Concomitant]
     Active Substance: LEVOTHYROXINE
     Indication: Product used for unknown indication
     Route: 016
  273. LEVOTHYROXINE [Concomitant]
     Active Substance: LEVOTHYROXINE
     Indication: Abdominal discomfort
  274. LEVOTHYROXINE [Concomitant]
     Active Substance: LEVOTHYROXINE
  275. LEVOTHYROXINE [Concomitant]
     Active Substance: LEVOTHYROXINE
  276. LEVOTHYROXINE [Concomitant]
     Active Substance: LEVOTHYROXINE
  277. ACTIVATED CHARCOAL [Concomitant]
     Active Substance: ACTIVATED CHARCOAL
     Indication: Product used for unknown indication
  278. ACTIVATED CHARCOAL [Concomitant]
     Active Substance: ACTIVATED CHARCOAL
     Indication: Product used for unknown indication
     Dosage: 750 MG, QD
  279. CARBACHOL [Concomitant]
     Active Substance: CARBACHOL
     Indication: Product used for unknown indication
  280. THEOPHYLLINE [Concomitant]
     Active Substance: THEOPHYLLINE
     Indication: Depression
     Dosage: 750 MG, ONCE PER DAY, (750 MG, QD)
  281. THEOPHYLLINE [Concomitant]
     Active Substance: THEOPHYLLINE
     Indication: Abdominal discomfort
     Dosage: 750 MG, QD
  282. THEOPHYLLINE [Concomitant]
     Active Substance: THEOPHYLLINE
     Indication: Abdominal discomfort
     Dosage: 750 MG, ONCE PER DAY, (750 MG, QD)
  283. DOXYCYCLINE HYCLATE [Concomitant]
     Active Substance: DOXYCYCLINE HYCLATE
     Indication: Pulmonary pain
  284. DOXYCYCLINE HYCLATE [Concomitant]
     Active Substance: DOXYCYCLINE HYCLATE
  285. DOXYCYCLINE HYCLATE [Concomitant]
     Active Substance: DOXYCYCLINE HYCLATE
  286. DIETARY SUPPLEMENT [Concomitant]
     Active Substance: DIETARY SUPPLEMENT
     Indication: Product used for unknown indication
     Dosage: 750 MG, QD
  287. CHARCOAL [Concomitant]
     Active Substance: ACTIVATED CHARCOAL
  288. DOXYCYCLINE [Concomitant]
     Active Substance: DOXYCYCLINE
     Indication: Pulmonary pain
  289. DOXYCYCLINE [Concomitant]
     Active Substance: DOXYCYCLINE
     Indication: Pulmonary pain
  290. DOXYCYCLINE [Concomitant]
     Active Substance: DOXYCYCLINE
     Indication: Pulmonary pain
  291. CHARCOAL ACTIVATED [Concomitant]
     Active Substance: ACTIVATED CHARCOAL
     Indication: Depression
  292. CHARCOAL ACTIVATED [Concomitant]
     Active Substance: ACTIVATED CHARCOAL
     Dosage: 750 MG, QD
  293. CHARCOAL ACTIVATED [Concomitant]
     Active Substance: ACTIVATED CHARCOAL
     Dosage: 750 MG, QD
  294. CHARCOAL ACTIVATED [Concomitant]
     Active Substance: ACTIVATED CHARCOAL
     Dosage: 750 MG, QD
  295. CHARCOAL ACTIVATED [Concomitant]
     Active Substance: ACTIVATED CHARCOAL
  296. CHARCOAL ACTIVATED [Concomitant]
     Active Substance: ACTIVATED CHARCOAL
  297. CETIRIZINE [Concomitant]
     Active Substance: CETIRIZINE HYDROCHLORIDE
     Indication: Product used for unknown indication
  298. CETIRIZINE [Concomitant]
     Active Substance: CETIRIZINE HYDROCHLORIDE
     Indication: Abdominal discomfort
  299. CETIRIZINE [Concomitant]
     Active Substance: CETIRIZINE HYDROCHLORIDE
     Indication: Product used for unknown indication
  300. CETIRIZINE [Concomitant]
     Active Substance: CETIRIZINE HYDROCHLORIDE
     Indication: Abdominal discomfort
  301. CETIRIZINE [Concomitant]
     Active Substance: CETIRIZINE HYDROCHLORIDE
  302. CETIRIZINE [Concomitant]
     Active Substance: CETIRIZINE HYDROCHLORIDE
  303. CETIRIZINE [Concomitant]
     Active Substance: CETIRIZINE HYDROCHLORIDE
  304. CETIRIZINE [Concomitant]
     Active Substance: CETIRIZINE HYDROCHLORIDE
  305. CARBOCYSTEINE [Concomitant]
     Active Substance: CARBOCYSTEINE
     Indication: Rheumatoid arthritis
     Dosage: 750 MG, QD
     Dates: start: 20120917
  306. CARBOCYSTEINE [Concomitant]
     Active Substance: CARBOCYSTEINE
     Dosage: 750 MG, QD
     Route: 048
     Dates: start: 20210917
  307. CARBOCYSTEINE [Concomitant]
     Active Substance: CARBOCYSTEINE
     Dosage: 750 MG, QD
  308. CHARCOAL ACTIVATED [Concomitant]
     Active Substance: ACTIVATED CHARCOAL
     Indication: Product used for unknown indication
  309. CHARCOAL ACTIVATED [Concomitant]
     Active Substance: ACTIVATED CHARCOAL

REACTIONS (14)
  - Lower respiratory tract infection [Not Recovered/Not Resolved]
  - Pulmonary pain [Unknown]
  - Arthropathy [Unknown]
  - Abdominal discomfort [Unknown]
  - Obesity [Unknown]
  - Amyloid arthropathy [Unknown]
  - Drug abuse [Unknown]
  - Rash [Not Recovered/Not Resolved]
  - Knee arthroplasty [Unknown]
  - Product dose omission issue [Unknown]
  - Overdose [Unknown]
  - Intentional product misuse [Unknown]
  - Off label use [Unknown]
  - Product administration error [Unknown]

NARRATIVE: CASE EVENT DATE: 20191029
